FAERS Safety Report 6376757-X (Version None)
Quarter: 2009Q3

REPORT INFORMATION
  Report Type: 
  Country: None (occurrence: None)
  Receive Date: 20090921
  Receipt Date: 20090818
  Transmission Date: 20100115
  Serious: Yes (Hospitalization)
  Sender: FDA-Public Use
  Company Number: TKS# 42246/OCD

PATIENT
  Sex: Female

DRUGS (1)
  1. UVADEX [Suspect]
     Indication: CHRONIC GRAFT VERSUS HOST DISEASE
     Dosage: EXTRACORPOREAL; 1 CYCLE EVERY 2 WEEKS, 20 CYCLES
     Dates: start: 20081101

REACTIONS (2)
  - SUPRAVENTRICULAR EXTRASYSTOLES [None]
  - SUPRAVENTRICULAR TACHYCARDIA [None]
